FAERS Safety Report 6207244-7 (Version None)
Quarter: 2009Q2

REPORT INFORMATION
  Report Type: 
  Country: None (occurrence: None)
  Receive Date: 20090528
  Receipt Date: 20090327
  Transmission Date: 20091009
  Serious: Yes (Other)
  Sender: FDA-Public Use
  Company Number: US-PFIZER INC-2009168791

PATIENT
  Sex: Female
  Weight: 63.502 kg

DRUGS (5)
  1. SOLU-MEDROL [Suspect]
     Indication: WHEEZING
     Dates: start: 20081128, end: 20081205
  2. SOLU-MEDROL [Suspect]
     Indication: ASTHMA
  3. SOLU-MEDROL [Suspect]
     Indication: BRONCHITIS
  4. ADVIL [Concomitant]
  5. MOTRIN [Concomitant]

REACTIONS (1)
  - OEDEMA PERIPHERAL [None]
